FAERS Safety Report 5307115-4 (Version None)
Quarter: 2007Q2

REPORT INFORMATION
  Report Type: 
  Country: None (occurrence: None)
  Receive Date: 20070423
  Receipt Date: 20070423
  Transmission Date: 20071010
  Serious: Yes (Death)
  Sender: FDA-Public Use
  Company Number: None

PATIENT
  Sex: Male
  Weight: 110.6777 kg

DRUGS (2)
  1. ERBITUX [Suspect]
     Indication: NEOPLASM RECURRENCE
     Dosage: 888 MG INITIAL DOSE IV
     Route: 042
     Dates: start: 20070416
  2. ERBITUX [Suspect]
     Indication: RECTAL CANCER METASTATIC
     Dosage: 888 MG INITIAL DOSE IV
     Route: 042
     Dates: start: 20070416

REACTIONS (8)
  - ACIDOSIS [None]
  - CARDIAC ARREST [None]
  - DYSPNOEA [None]
  - FEELING HOT [None]
  - INFUSION RELATED REACTION [None]
  - MYOCARDIAL INFARCTION [None]
  - RESPIRATORY ARREST [None]
  - VENTRICULAR TACHYCARDIA [None]
